FAERS Safety Report 11753361 (Version 1)
Quarter: 2015Q4

REPORT INFORMATION
  Report Type: Spontaneous
  Country: US (occurrence: US)
  Receive Date: 20151119
  Receipt Date: 20151119
  Transmission Date: 20160304
  Serious: Yes (Death)
  Sender: FDA-Public Use
  Company Number: US-BAYER-2015-462492

PATIENT
  Sex: Female

DRUGS (1)
  1. CAMPHO-PHENIQUE ANTISEPTIC LIQUID [Suspect]
     Active Substance: CAMPHORATED PHENOL
     Indication: APHTHOUS ULCER
     Route: 048

REACTIONS (2)
  - Death [Fatal]
  - Product use issue [None]
